FAERS Safety Report 24443553 (Version 2)
Quarter: 2024Q4

REPORT INFORMATION
  Report Type: Report from Study
  Country: US (occurrence: US)
  Receive Date: 20241016
  Receipt Date: 20241017
  Transmission Date: 20250115
  Serious: No
  Sender: ROCHE
  Company Number: US-ROCHE-2030458

PATIENT
  Age: 53 Year
  Sex: Male

DRUGS (4)
  1. RITUXAN [Suspect]
     Active Substance: RITUXIMAB
     Indication: Myelitis
     Dosage: DAY 1 AND DAY 15
     Route: 041
     Dates: start: 201310
  2. RITUXAN [Suspect]
     Active Substance: RITUXIMAB
     Indication: Neuromyelitis optica spectrum disorder
     Dosage: SUBSEQUENT DOSEAGE ON 09/SEP/2014, 14/AUG/2015, 28/AUG/2015, 10/MAR/2017, 24/MAR/2017, 02/MAR/2018,
     Route: 041
     Dates: start: 20140812
  3. RITUXAN [Suspect]
     Active Substance: RITUXIMAB
     Route: 041
     Dates: start: 201508
  4. RITUXAN [Suspect]
     Active Substance: RITUXIMAB
     Dosage: ON DAY 1 AND DAY 15; INFUSE 1000MG INTRAVENOUSLY ON 2 DATES 2 WEEKS APART AS DIRECTED
     Route: 041

REACTIONS (2)
  - Off label use [Unknown]
  - No adverse event [Unknown]
